APPROVED DRUG PRODUCT: BIMATOPROST
Active Ingredient: BIMATOPROST
Strength: 0.03%
Dosage Form/Route: SOLUTION/DROPS;OPHTHALMIC
Application: A090449 | Product #001 | TE Code: AT
Applicant: APOTEX INC
Approved: Jul 20, 2015 | RLD: No | RS: No | Type: RX